FAERS Safety Report 5693576-8 (Version None)
Quarter: 2008Q2

REPORT INFORMATION
  Report Type: 
  Country: None (occurrence: None)
  Receive Date: 20080401
  Receipt Date: 20080401
  Transmission Date: 20081010
  Serious: Yes (Hospitalization)
  Sender: FDA-Public Use
  Company Number: None

PATIENT
  Age: 51 Year
  Sex: Male
  Weight: 64.86 kg

DRUGS (1)
  1. CLONAZEPAM [Suspect]
     Indication: RESTLESS LEGS SYNDROME
     Dosage: 2MG HS PO
     Route: 048
     Dates: start: 20060813, end: 20080308

REACTIONS (5)
  - AGITATION [None]
  - CONFUSIONAL STATE [None]
  - DELIRIUM [None]
  - DEPRESSION [None]
  - DRUG WITHDRAWAL SYNDROME [None]
